FAERS Safety Report 19443872 (Version 1)
Quarter: 2021Q2

REPORT INFORMATION
  Report Type: Spontaneous
  Country: CN (occurrence: CN)
  Receive Date: 20210621
  Receipt Date: 20210621
  Transmission Date: 20210717
  Serious: Yes (Life-Threatening, Other)
  Sender: FDA-Public Use
  Company Number: CN-ASTRAZENECA-2021A539606

PATIENT
  Age: 29759 Day
  Sex: Female
  Weight: 70 kg

DRUGS (2)
  1. PULMICORT RESPULES [Suspect]
     Active Substance: BUDESONIDE
     Indication: WHEEZING
     Route: 055
     Dates: start: 20210612, end: 20210612
  2. STERILE WATER [Concomitant]
     Active Substance: WATER
     Route: 055
     Dates: start: 20210412, end: 20210612

REACTIONS (4)
  - Hypopnoea [Recovering/Resolving]
  - Oxygen saturation decreased [Recovering/Resolving]
  - Asthenia [Unknown]
  - Somnolence [Unknown]

NARRATIVE: CASE EVENT DATE: 20210612
